FAERS Safety Report 14951583 (Version 1)
Quarter: 2018Q2

REPORT INFORMATION
  Report Type: Spontaneous
  Country: US (occurrence: US)
  Receive Date: 20180509
  Receipt Date: 20180509
  Transmission Date: 20180711
  Serious: No
  Sender: FDA-Public Use
  Company Number: None

PATIENT
  Age: 42 Year
  Sex: Female
  Weight: 126 kg

DRUGS (1)
  1. CELECOXIB. [Suspect]
     Active Substance: CELECOXIB
     Indication: ARTHRITIS
     Route: 048
     Dates: start: 20170401, end: 20180414

REACTIONS (6)
  - Photosensitivity reaction [None]
  - Erythema [None]
  - Nail growth abnormal [None]
  - Pruritus [None]
  - Loss of personal independence in daily activities [None]
  - Rash [None]

NARRATIVE: CASE EVENT DATE: 20180414
